FAERS Safety Report 4280276-4 (Version None)
Quarter: 2004Q1

REPORT INFORMATION
  Report Type: 
  Country: None (occurrence: None)
  Receive Date: 20040126
  Receipt Date: 20040113
  Transmission Date: 20041129
  Serious: Yes (Hospitalization, Other)
  Sender: FDA-Public Use
  Company Number: 2003121556

PATIENT
  Age: 67 Year
  Sex: Male
  Weight: 124.7392 kg

DRUGS (4)
  1. TIKOSYN [Suspect]
     Indication: ATRIAL FIBRILLATION
     Dosage: 1000 MCG (BID) , ORAL
     Route: 048
     Dates: start: 20030101
  2. ENALAPRIL MALEATE [Concomitant]
  3. METOPROLOL SUCCINATE [Concomitant]
  4. WARFARIN SODIUM [Concomitant]

REACTIONS (2)
  - AORTIC ANEURYSM [None]
  - CONDITION AGGRAVATED [None]
